FAERS Safety Report 14448429 (Version 1)
Quarter: 2018Q1

REPORT INFORMATION
  Report Type: Spontaneous
  Country: US (occurrence: US)
  Receive Date: 20180126
  Receipt Date: 20180126
  Transmission Date: 20180509
  Serious: No
  Sender: FDA-Public Use
  Company Number: None

PATIENT
  Age: 57 Year
  Sex: Female
  Weight: 65.25 kg

DRUGS (5)
  1. FIT K [Concomitant]
  2. MULTI VIT [Concomitant]
  3. FIT D [Concomitant]
  4. OSELTAMIVIR PHOSPHATE CAPSULES [Suspect]
     Active Substance: OSELTAMIVIR PHOSPHATE
     Indication: INFLUENZA
     Dosage: ?          QUANTITY:1 CAPSULE(S);?
     Route: 048
     Dates: start: 20180123, end: 20180123
  5. FISH OI [Concomitant]

REACTIONS (5)
  - Diarrhoea [None]
  - Restless legs syndrome [None]
  - Abdominal pain upper [None]
  - Anxiety [None]
  - Initial insomnia [None]

NARRATIVE: CASE EVENT DATE: 20180123
